FAERS Safety Report 10987083 (Version 1)
Quarter: 2015Q1

REPORT INFORMATION
  Report Type: Spontaneous
  Country: US (occurrence: None)
  Receive Date: 20150316
  Receipt Date: 20150316
  Transmission Date: 20150721
  Serious: Yes (Other)
  Sender: FDA-Public Use
  Company Number: 1000072010

PATIENT
  Age: 71 Year
  Sex: Male

DRUGS (7)
  1. DALIRESP [Suspect]
     Active Substance: ROFLUMILAST
     Indication: CHRONIC OBSTRUCTIVE PULMONARY DISEASE
     Route: 048
     Dates: start: 201409, end: 201409
  2. OXYGEN (OXYGEN) (OXYGEN) [Concomitant]
  3. DALIRESP [Suspect]
     Active Substance: ROFLUMILAST
     Indication: CHRONIC OBSTRUCTIVE PULMONARY DISEASE
     Route: 048
     Dates: start: 201408, end: 201408
  4. FINASTERIDE (FINASTERIDE) (FINASTERIDE) [Concomitant]
  5. SIMVASTATIN (SIMVASTATIN) (SIMVASTATIN) [Concomitant]
     Active Substance: SIMVASTATIN
  6. FLOMAX (TAMSULOSIN) (TAMSULOSIN) [Concomitant]
  7. DULERA (DULERA) (DULERA) [Concomitant]

REACTIONS (5)
  - Influenza like illness [None]
  - Headache [None]
  - Decreased appetite [None]
  - Diarrhoea [None]
  - Weight decreased [None]

NARRATIVE: CASE EVENT DATE: 2014
